FAERS Safety Report 4668518-4 (Version None)
Quarter: 2005Q2

REPORT INFORMATION
  Report Type: 
  Country: None (occurrence: None)
  Receive Date: 20050519
  Receipt Date: 20050509
  Transmission Date: 20051028
  Serious: Yes (Hospitalization)
  Sender: FDA-Public Use
  Company Number: 2005-01602

PATIENT
  Age: 60 Year
  Sex: Female

DRUGS (4)
  1. FLUOROURACIL [Suspect]
     Indication: CHEMOTHERAPY
     Dosage: QD X 5 DAYS THEN 3 WEKS OFF, INTRAVENOUS
     Route: 042
  2. WARFARIN SODIUM [Suspect]
     Indication: THROMBOSIS PROPHYLAXIS
     Dosage: SEE IMAGE
     Route: 048
  3. LEUCOVORIN CALCIUM [Concomitant]
  4. PROCHLORPERAZINE MALEATE [Concomitant]

REACTIONS (4)
  - ANAEMIA [None]
  - DRUG INTERACTION POTENTIATION [None]
  - GASTROINTESTINAL HAEMORRHAGE [None]
  - INTERNATIONAL NORMALISED RATIO INCREASED [None]
